FAERS Safety Report 9559499 (Version 1)
Quarter: 2013Q3

REPORT INFORMATION
  Report Type: Report from Study
  Country: CA (occurrence: CA)
  Receive Date: 20130927
  Receipt Date: 20130927
  Transmission Date: 20140515
  Serious: Yes (Other)
  Sender: FDA-Public Use
  Company Number: CA-JNJFOC-20130913270

PATIENT
  Age: 28 Year
  Sex: Female
  Weight: 69.4 kg

DRUGS (3)
  1. REMICADE [Suspect]
     Indication: COLITIS ULCERATIVE
     Dosage: 18TH INFUSION
     Route: 042
     Dates: start: 20130726
  2. REMICADE [Suspect]
     Indication: COLITIS ULCERATIVE
     Route: 042
     Dates: start: 20110207
  3. ALESSE [Concomitant]
     Route: 065

REACTIONS (1)
  - Thyroid neoplasm [Recovered/Resolved]
